FAERS Safety Report 7469334-0 (Version None)
Quarter: 2011Q2

REPORT INFORMATION
  Report Type: 
  Country: None (occurrence: None)
  Receive Date: 20110429
  Receipt Date: 20110414
  Transmission Date: 20111010
  Serious: Yes (Hospitalization)
  Sender: FDA-Public Use
  Company Number: DSJ-2010-20811

PATIENT
  Sex: Female

DRUGS (3)
  1. AMFEPRAMONE (AMFEPRAMONE) (AMFEPRAMONE) [Concomitant]
  2. BENICAR [Suspect]
     Indication: HYPERTENSION
     Dosage: 20 MG (20 MG,1 IN 1 D),PER ORAL ; 20 MG (20 MG,1 IN 1 D),PER ORAL
     Route: 048
     Dates: start: 20110201
  3. BENICAR [Suspect]
     Indication: HYPERTENSION
     Dosage: 20 MG (20 MG,1 IN 1 D),PER ORAL ; 20 MG (20 MG,1 IN 1 D),PER ORAL
     Route: 048
     Dates: start: 20050101, end: 20101101

REACTIONS (2)
  - DRUG INEFFECTIVE [None]
  - HYSTERECTOMY [None]
